FAERS Safety Report 6173371-6 (Version None)
Quarter: 2009Q2

REPORT INFORMATION
  Report Type: 
  Country: None (occurrence: None)
  Receive Date: 20090424
  Receipt Date: 20090123
  Transmission Date: 20091009
  Serious: Yes (Hospitalization)
  Sender: FDA-Public Use
  Company Number: SPV1-2009-00054

PATIENT
  Sex: Female
  Weight: 52.2 kg

DRUGS (4)
  1. VYVANSE [Suspect]
     Dosage: 20 MG, 1X/DAY:QD, ORAL
     Route: 047
     Dates: start: 20080301, end: 20090107
  2. CLONIDINE [Concomitant]
  3. SEROQUEL [Concomitant]
  4. AMBIEN [Concomitant]

REACTIONS (3)
  - ANGIOEDEMA [None]
  - ARTHRALGIA [None]
  - URTICARIA [None]
